FAERS Safety Report 9338629 (Version 1)
Quarter: 2013Q2

REPORT INFORMATION
  Report Type: Report from Study
  Country: US (occurrence: US)
  Receive Date: 20130610
  Receipt Date: 20130610
  Transmission Date: 20140414
  Serious: Yes (Other)
  Sender: FDA-Public Use
  Company Number: US-JNJFOC-20130601572

PATIENT
  Age: 34 Year
  Sex: Male

DRUGS (7)
  1. REMICADE [Suspect]
     Indication: COLITIS ULCERATIVE
     Route: 042
  2. REMICADE [Suspect]
     Indication: COLITIS ULCERATIVE
     Dosage: 4TH ROUND OF INFUSION
     Route: 042
     Dates: start: 201305
  3. IMURAN [Concomitant]
     Route: 048
  4. PREDNISONE [Concomitant]
     Route: 048
  5. VITAMIN B12 [Concomitant]
     Route: 050
  6. MULTIVITAMINS [Concomitant]
     Route: 065
  7. PROBIOTIC [Concomitant]
     Route: 065

REACTIONS (4)
  - Anal fistula [Unknown]
  - Colitis ulcerative [Unknown]
  - Rectal fissure [Unknown]
  - Blood count abnormal [Unknown]
